FAERS Safety Report 16053564 (Version 1)
Quarter: 2019Q1

REPORT INFORMATION
  Report Type: Spontaneous
  Country: FR (occurrence: FR)
  Receive Date: 20190308
  Receipt Date: 20190308
  Transmission Date: 20190418
  Serious: Yes (Hospitalization)
  Sender: FDA-Public Use
  Company Number: FR-MYLANLABS-2019M1021381

PATIENT
  Age: 43 Year
  Sex: Female
  Weight: 55 kg

DRUGS (2)
  1. AMOXICILLIN. [Suspect]
     Active Substance: AMOXICILLIN
     Indication: EAR PAIN
     Dosage: 1 GRAM, QD
     Route: 048
     Dates: start: 20180310, end: 20180310
  2. IBUPROFEN. [Suspect]
     Active Substance: IBUPROFEN
     Indication: EAR PAIN
     Dosage: 400 MILLIGRAM, QD
     Route: 048
     Dates: start: 20180310, end: 20180310

REACTIONS (3)
  - Vertigo [Not Recovered/Not Resolved]
  - Hypoacusis [Not Recovered/Not Resolved]
  - Tinnitus [Not Recovered/Not Resolved]

NARRATIVE: CASE EVENT DATE: 20180310
